FAERS Safety Report 11334747 (Version 7)
Quarter: 2015Q4

REPORT INFORMATION
  Report Type: Spontaneous
  Country: JP (occurrence: None)
  Receive Date: 20150731
  Receipt Date: 20151016
  Transmission Date: 20160304
  Serious: Yes (Death, Hospitalization, Other)
  Sender: FDA-Public Use
  Company Number: ADR-2015-01432

PATIENT
  Age: 58 Year
  Sex: Male
  Weight: 67 kg

DRUGS (1)
  1. GABALON INTRATHECAL [Suspect]
     Active Substance: BACLOFEN
     Dosage: 50 MCG/DAY

REACTIONS (1)
  - Condition aggravated [None]
